FAERS Safety Report 4383129-6 (Version None)
Quarter: 2004Q2

REPORT INFORMATION
  Report Type: 
  Country: None (occurrence: None)
  Receive Date: 20040618
  Receipt Date: 20040607
  Transmission Date: 20050107
  Serious: Yes (Other)
  Sender: FDA-Public Use
  Company Number: US-JNJFOC-20031102715

PATIENT
  Age: 44 Year
  Sex: Female
  Weight: 86.9092 kg

DRUGS (5)
  1. RISPERDAL [Suspect]
     Indication: SCHIZOPHRENIA
     Dates: start: 20030619, end: 20031016
  2. OLANZAPINE [Suspect]
     Indication: SCHIZOPHRENIA
     Dates: start: 20030619, end: 20031016
  3. QUETIAPINE (QUETIAPINE) [Suspect]
     Indication: SCHIZOPHRENIA
     Dates: start: 20030619, end: 20031016
  4. ZIPRASIDONE (ZIPRASIDONE) [Suspect]
     Indication: SCHIZOPHRENIA
     Dates: start: 20030619, end: 20031016
  5. PERPHENAZINE [Suspect]
     Indication: SCHIZOPHRENIA
     Dates: start: 20030619, end: 20031016

REACTIONS (2)
  - HYPERCHOLESTEROLAEMIA [None]
  - WEIGHT INCREASED [None]
